FAERS Safety Report 18418568 (Version 1)
Quarter: 2020Q4

REPORT INFORMATION
  Report Type: Spontaneous
  Country: TR (occurrence: TR)
  Receive Date: 20201023
  Receipt Date: 20201023
  Transmission Date: 20210114
  Serious: Yes (Hospitalization)
  Sender: FDA-Public Use
  Company Number: TR-ROCHE-2693880

PATIENT

DRUGS (2)
  1. ALTUZAN [Suspect]
     Active Substance: BEVACIZUMAB
     Indication: MACULAR OEDEMA
     Dosage: 1,25MG/ 0.05ML
     Route: 050
     Dates: start: 20200918
  2. ALCAINE [Concomitant]
     Active Substance: PROPARACAINE HYDROCHLORIDE
     Dosage: 1-2DROPS
     Route: 061
     Dates: start: 20200918

REACTIONS (8)
  - Ciliary hyperaemia [Recovering/Resolving]
  - Intentional product use issue [Unknown]
  - Vision blurred [Recovering/Resolving]
  - Vitritis [Recovering/Resolving]
  - Hypopyon [Recovering/Resolving]
  - Conjunctival hyperaemia [Recovering/Resolving]
  - Anterior chamber inflammation [Recovering/Resolving]
  - Off label use [Unknown]

NARRATIVE: CASE EVENT DATE: 20200919
